FAERS Safety Report 7313571-2 (Version None)
Quarter: 2011Q1

REPORT INFORMATION
  Report Type: 
  Country: None (occurrence: None)
  Receive Date: 20110215
  Receipt Date: 20110215
  Transmission Date: 20110831
  Serious: No
  Sender: FDA-Public Use
  Company Number: None

PATIENT
  Age: 61 Year
  Sex: Female
  Weight: 48.5349 kg

DRUGS (1)
  1. NASACORT AQ [Suspect]

REACTIONS (4)
  - INFECTION [None]
  - NASAL SEPTUM PERFORATION [None]
  - SCAB [None]
  - EPISTAXIS [None]
